FAERS Safety Report 4732498-3 (Version None)
Quarter: 2005Q3

REPORT INFORMATION
  Report Type: 
  Country: None (occurrence: None)
  Receive Date: 20050803
  Receipt Date: 20050722
  Transmission Date: 20060218
  Serious: Yes (Hospitalization)
  Sender: FDA-Public Use
  Company Number: US-GLAXOSMITHKLINE-A0567609A

PATIENT
  Age: 51 Year
  Sex: Male
  Weight: 86.4 kg

DRUGS (2)
  1. TOPOTECAN [Suspect]
     Indication: GLIOBLASTOMA MULTIFORME
     Dosage: 2MG CYCLIC
     Route: 048
     Dates: start: 20050322
  2. TEMODAR [Suspect]
     Indication: GLIOBLASTOMA MULTIFORME
     Dosage: 400MG CYCLIC
     Route: 048
     Dates: start: 20050617

REACTIONS (2)
  - DEEP VEIN THROMBOSIS [None]
  - PNEUMONIA [None]
